FAERS Safety Report 24693906 (Version 1)
Quarter: 2024Q4

REPORT INFORMATION
  Report Type: Spontaneous
  Country: US (occurrence: US)
  Receive Date: 20241204
  Receipt Date: 20241204
  Transmission Date: 20250115
  Serious: No
  Sender: PACIRA
  Company Number: US-ORG100016242-2023000308

PATIENT
  Sex: Male

DRUGS (1)
  1. ZILRETTA [Suspect]
     Active Substance: TRIAMCINOLONE ACETONIDE
     Indication: Joint effusion
     Dosage: NOT PROVIDED, 4 MONTHS AGO
     Route: 014
     Dates: start: 2023, end: 2023

REACTIONS (5)
  - Sunburn [Unknown]
  - Insomnia [Unknown]
  - Palpitations [Unknown]
  - Joint instability [Unknown]
  - Off label use [Unknown]
